FAERS Safety Report 22140817 (Version 1)
Quarter: 2023Q1

REPORT INFORMATION
  Report Type: Spontaneous
  Country: US (occurrence: US)
  Receive Date: 20230327
  Receipt Date: 20230327
  Transmission Date: 20230417
  Serious: Yes (Other)
  Sender: FDA-Public Use
  Company Number: US-PFIZER INC-202300122136

PATIENT
  Age: 43 Year
  Sex: Female
  Weight: 79.38 kg

DRUGS (3)
  1. PAXLOVID [Suspect]
     Active Substance: NIRMATRELVIR\RITONAVIR
     Indication: COVID-19 treatment
     Dosage: 1 DF, 300/100MG TAKE ONE TABLET (BID) TWICE A DAY
     Route: 048
     Dates: start: 20230313
  2. ELETRIPTAN [Suspect]
     Active Substance: ELETRIPTAN
     Indication: Migraine
     Dosage: UNK, 2X/DAY
  3. ELETRIPTAN [Suspect]
     Active Substance: ELETRIPTAN
     Indication: Headache

REACTIONS (4)
  - Urine odour abnormal [Unknown]
  - Abnormal faeces [Unknown]
  - Off label use [Unknown]
  - Headache [Not Recovered/Not Resolved]

NARRATIVE: CASE EVENT DATE: 20230316
